FAERS Safety Report 6311552-9 (Version None)
Quarter: 2009Q3

REPORT INFORMATION
  Report Type: 
  Country: None (occurrence: None)
  Receive Date: 20090817
  Receipt Date: 20090806
  Transmission Date: 20100115
  Serious: Yes (Life-Threatening, Hospitalization)
  Sender: FDA-Public Use
  Company Number: JP-PFIZER INC-2009223352

PATIENT
  Age: 74 Year

DRUGS (1)
  1. SUNITINIB MALATE [Suspect]
     Indication: RENAL CELL CARCINOMA
     Dosage: TDD: 50 MG
     Route: 048
     Dates: start: 20090518

REACTIONS (3)
  - BRAIN OEDEMA [None]
  - PLATELET COUNT DECREASED [None]
  - THROMBOCYTOPENIA [None]
